FAERS Safety Report 8274273-1 (Version None)
Quarter: 2012Q2

REPORT INFORMATION
  Report Type: 
  Country: None (occurrence: None)
  Receive Date: 20120411
  Receipt Date: 20120411
  Transmission Date: 20120825
  Serious: Yes (Hospitalization)
  Sender: FDA-Public Use
  Company Number: None

PATIENT
  Sex: Female
  Weight: 41.276 kg

DRUGS (1)
  1. CIPROFLOXACIN HCL [Suspect]
     Indication: URINARY TRACT INFECTION
     Dosage: 250MG
     Route: 048
     Dates: start: 20110801, end: 20110805

REACTIONS (13)
  - HEADACHE [None]
  - PANIC REACTION [None]
  - BURNING SENSATION [None]
  - FATIGUE [None]
  - HYPOAESTHESIA [None]
  - ALOPECIA [None]
  - WEIGHT DECREASED [None]
  - PALPITATIONS [None]
  - PERIPHERAL COLDNESS [None]
  - BACK PAIN [None]
  - MUSCULOSKELETAL PAIN [None]
  - PAIN IN EXTREMITY [None]
  - CHILLS [None]
